FAERS Safety Report 19674625 (Version 1)
Quarter: 2021Q3

REPORT INFORMATION
  Report Type: Other
  Country: CA (occurrence: CA)
  Receive Date: 20210809
  Receipt Date: 20210809
  Transmission Date: 20211014
  Serious: Yes (Disabling, Other)
  Sender: FDA-Public Use
  Company Number: CA-APOTEX-2021AP009962

PATIENT
  Age: 58 Year
  Sex: Male
  Weight: 107 kg

DRUGS (2)
  1. CIPROFLOXACIN. [Suspect]
     Active Substance: CIPROFLOXACIN
     Indication: SINUSITIS
     Dosage: 500 MILLIGRAM, QD
     Route: 048
  2. MOXIFLOXACIN. [Suspect]
     Active Substance: MOXIFLOXACIN
     Indication: SINUSITIS
     Dosage: 500 MILLIGRAM, ONCE
     Route: 048

REACTIONS (4)
  - Pain [Not Recovered/Not Resolved]
  - Tendonitis [Not Recovered/Not Resolved]
  - Therapy change [Not Recovered/Not Resolved]
  - Condition aggravated [Not Recovered/Not Resolved]
